FAERS Safety Report 14555059 (Version 6)
Quarter: 2019Q3

REPORT INFORMATION
  Report Type: Report from Study
  Country: CA (occurrence: CA)
  Receive Date: 20180220
  Receipt Date: 20190906
  Transmission Date: 20191004
  Serious: Yes (Hospitalization, Other)
  Sender: FDA-Public Use
  Company Number: CA-GLAXOSMITHKLINE-CA2018GSK026884

PATIENT
  Sex: Female

DRUGS (5)
  1. NUCALA [Concomitant]
     Active Substance: MEPOLIZUMAB
     Indication: ASTHMA
     Dosage: UNK (INJECTION)
     Route: 042
     Dates: start: 20180301
  2. SALBUTAMOL SULPHATE [Suspect]
     Active Substance: ALBUTEROL SULFATE
     Indication: PRODUCT USED FOR UNKNOWN INDICATION
     Dosage: UNK
     Dates: start: 1992
  3. SINGULAIR [Suspect]
     Active Substance: MONTELUKAST SODIUM
     Indication: PRODUCT USED FOR UNKNOWN INDICATION
     Dosage: UNK
  4. SPIRIVA RESPIMAT [Suspect]
     Active Substance: TIOTROPIUM BROMIDE
     Indication: PRODUCT USED FOR UNKNOWN INDICATION
     Dosage: 2 DF, QD (2 ONCE DAILY)
  5. ARNUITY ELLIPTA [Suspect]
     Active Substance: FLUTICASONE FUROATE
     Indication: PRODUCT USED FOR UNKNOWN INDICATION
     Dosage: UNK

REACTIONS (16)
  - Influenza [Unknown]
  - Migraine [Unknown]
  - Seronegative arthritis [Unknown]
  - Drug ineffective [Unknown]
  - Nasopharyngitis [Unknown]
  - Viral infection [Unknown]
  - Upper-airway cough syndrome [Unknown]
  - Generalised anxiety disorder [Unknown]
  - Cough [Unknown]
  - Dyspnoea [Unknown]
  - Night sweats [Unknown]
  - Pneumonia streptococcal [Unknown]
  - Asthma [Unknown]
  - Sinusitis [Not Recovered/Not Resolved]
  - Respiratory tract inflammation [Unknown]
  - Post-traumatic stress disorder [Unknown]

NARRATIVE: CASE EVENT DATE: 2012
